FAERS Safety Report 19472437 (Version 1)
Quarter: 2021Q2

REPORT INFORMATION
  Report Type: Spontaneous
  Country: AR (occurrence: AR)
  Receive Date: 20210629
  Receipt Date: 20210629
  Transmission Date: 20210717
  Serious: Yes (Other)
  Sender: FDA-Public Use
  Company Number: AR-PFIZER INC-2021681674

PATIENT
  Age: 75 Year
  Sex: Female

DRUGS (1)
  1. IBRANCE [Suspect]
     Active Substance: PALBOCICLIB
     Indication: BREAST CANCER METASTATIC
     Dosage: 125 MG, CYCLIC (DAILY SCHEME 3X1)
     Dates: start: 20210216

REACTIONS (11)
  - Nail disorder [Unknown]
  - Anaemia [Unknown]
  - Lacrimation increased [Unknown]
  - Onychalgia [Unknown]
  - Alopecia [Unknown]
  - Drug hypersensitivity [Unknown]
  - Decreased immune responsiveness [Unknown]
  - Nail bed bleeding [Unknown]
  - Nausea [Unknown]
  - Loss of personal independence in daily activities [Unknown]
  - Breast haemorrhage [Unknown]

NARRATIVE: CASE EVENT DATE: 2021
